FAERS Safety Report 23232294 (Version 2)
Quarter: 2024Q1

REPORT INFORMATION
  Report Type: Spontaneous
  Country: JP (occurrence: JP)
  Receive Date: 20231127
  Receipt Date: 20240207
  Transmission Date: 20240410
  Serious: Yes (Life-Threatening, Hospitalization, Other)
  Sender: FDA-Public Use
  Company Number: JP-BRISTOL-MYERS SQUIBB COMPANY-2023-052911

PATIENT
  Age: 83 Year
  Sex: Male
  Weight: 50 kg

DRUGS (10)
  1. ELIQUIS [Suspect]
     Active Substance: APIXABAN
     Indication: Atrial fibrillation
     Dosage: 5MG/DAY
     Route: 048
     Dates: end: 20220702
  2. ELIQUIS [Suspect]
     Active Substance: APIXABAN
     Indication: Traumatic intracranial haemorrhage
  3. VEMLIDY [Concomitant]
     Active Substance: TENOFOVIR ALAFENAMIDE FUMARATE
     Indication: Cerebrovascular accident prophylaxis
     Route: 048
     Dates: start: 201911, end: 20220702
  4. VEMLIDY [Concomitant]
     Active Substance: TENOFOVIR ALAFENAMIDE FUMARATE
     Indication: Traumatic intracranial haemorrhage
  5. FLECAINIDE [Concomitant]
     Active Substance: FLECAINIDE
     Indication: Atrial fibrillation
     Route: 048
  6. FLECAINIDE [Concomitant]
     Active Substance: FLECAINIDE
     Indication: Traumatic intracranial haemorrhage
  7. IMIDAFENACIN [Concomitant]
     Active Substance: IMIDAFENACIN
     Indication: Atrial fibrillation
     Route: 048
  8. IMIDAFENACIN [Concomitant]
     Active Substance: IMIDAFENACIN
     Indication: Traumatic intracranial haemorrhage
  9. TAMSULOSIN [Concomitant]
     Active Substance: TAMSULOSIN
     Indication: Atrial fibrillation
     Route: 048
  10. TAMSULOSIN [Concomitant]
     Active Substance: TAMSULOSIN
     Indication: Traumatic intracranial haemorrhage

REACTIONS (4)
  - Subdural haematoma [Unknown]
  - Subarachnoid haemorrhage [Unknown]
  - Cerebral haemorrhage [Recovered/Resolved with Sequelae]
  - Skull fracture [Unknown]

NARRATIVE: CASE EVENT DATE: 20220702
